FAERS Safety Report 9716637 (Version 1)
Quarter: 2013Q4

REPORT INFORMATION
  Report Type: Spontaneous
  Country: US (occurrence: US)
  Receive Date: 20131127
  Receipt Date: 20131127
  Transmission Date: 20140711
  Serious: No
  Sender: FDA-Public Use
  Company Number: US-PFIZER INC-2013338877

PATIENT
  Age: 51 Year
  Sex: Female
  Weight: 52.2 kg

DRUGS (2)
  1. CHANTIX [Suspect]
     Indication: SMOKING CESSATION THERAPY
     Dosage: UNK
     Dates: start: 20131007, end: 20131105
  2. DILTIAZEM [Concomitant]
     Indication: HYPERTENSION
     Dosage: 240 MG, DAILY

REACTIONS (3)
  - Insomnia [Recovered/Resolved]
  - Nervousness [Recovered/Resolved]
  - Flatulence [Recovered/Resolved]
